FAERS Safety Report 20988753 (Version 1)
Quarter: 2022Q2

REPORT INFORMATION
  Report Type: Report from Study
  Country: US (occurrence: US)
  Receive Date: 20220621
  Receipt Date: 20220621
  Transmission Date: 20220721
  Serious: Yes (Other)
  Sender: FDA-Public Use
  Company Number: US-BRISTOL-MYERS SQUIBB COMPANY-2022-040750

PATIENT
  Age: 58 Year
  Sex: Male

DRUGS (2)
  1. ZEPOSIA [Suspect]
     Active Substance: OZANIMOD HYDROCHLORIDE
     Indication: Colitis ulcerative
     Route: 048
     Dates: start: 20220510
  2. ZEPOSIA [Suspect]
     Active Substance: OZANIMOD HYDROCHLORIDE
     Dosage: FREQUENCY:DAILY,
     Route: 048
     Dates: start: 20220510

REACTIONS (9)
  - Gastroenteritis viral [Unknown]
  - Condition aggravated [Unknown]
  - Melaena [Unknown]
  - Haemorrhoids [Unknown]
  - Plicated tongue [Unknown]
  - Muscle spasms [Not Recovered/Not Resolved]
  - Abnormal faeces [Unknown]
  - Flatulence [Not Recovered/Not Resolved]
  - Abdominal discomfort [Not Recovered/Not Resolved]

NARRATIVE: CASE EVENT DATE: 20220510
